FAERS Safety Report 6039240-7 (Version None)
Quarter: 2009Q1

REPORT INFORMATION
  Report Type: 
  Country: None (occurrence: None)
  Receive Date: 20090115
  Receipt Date: 20090105
  Transmission Date: 20090719
  Serious: Yes (Other)
  Sender: FDA-Public Use
  Company Number: PHHY2009BR00576

PATIENT
  Age: 77 Year
  Sex: Female
  Weight: 78 kg

DRUGS (6)
  1. DIOVAN [Suspect]
     Indication: HYPERTENSION
     Dosage: 1 DF, QD
     Route: 048
     Dates: start: 20081210, end: 20090103
  2. GLUCOVANCE [Concomitant]
     Indication: DIABETES MELLITUS
     Dosage: 500/5 MG, 3 TIMES/DAY
     Route: 048
  3. ANDROCUR [Concomitant]
     Dosage: 50 MG, QD
     Route: 048
  4. CALTREN [Concomitant]
     Indication: HYPERTENSION
     Dosage: 10 MG, BID
     Route: 048
  5. APRESOLINE [Concomitant]
     Indication: HYPERTENSION
     Dosage: 25 MG, QID
     Route: 048
  6. CAPOTEN [Concomitant]
     Route: 048

REACTIONS (2)
  - BLOOD PRESSURE INADEQUATELY CONTROLLED [None]
  - DRUG DISPENSING ERROR [None]
